FAERS Safety Report 22006927 (Version 1)
Quarter: 2023Q1

REPORT INFORMATION
  Report Type: Spontaneous
  Country: DK (occurrence: DK)
  Receive Date: 20230217
  Receipt Date: 20230217
  Transmission Date: 20230417
  Serious: Yes (Hospitalization, Other)
  Sender: FDA-Public Use
  Company Number: DK-JAZZ-2023-DK-003266

PATIENT
  Age: 64 Year
  Sex: Male

DRUGS (1)
  1. VYXEOS [Suspect]
     Active Substance: CYTARABINE\DAUNORUBICIN
     Indication: Acute myeloid leukaemia
     Dosage: 44/100 MG
     Dates: start: 20201028, end: 20201213

REACTIONS (11)
  - Delirium [Recovered/Resolved]
  - Neutropenic colitis [Recovered/Resolved]
  - Febrile neutropenia [Recovered/Resolved]
  - Constipation [Recovered/Resolved]
  - Cholecystitis [Recovered/Resolved]
  - Erythema [Recovered/Resolved]
  - Abdominal pain [Recovered/Resolved]
  - General physical health deterioration [Recovered/Resolved]
  - Abdominal sepsis [Recovered/Resolved]
  - Rash pruritic [Recovered/Resolved]
  - Neutropenia [Unknown]

NARRATIVE: CASE EVENT DATE: 20201109
